FAERS Safety Report 18748849 (Version 1)
Quarter: 2021Q1

REPORT INFORMATION
  Report Type: Spontaneous
  Country: US (occurrence: US)
  Receive Date: 20210115
  Receipt Date: 20210115
  Transmission Date: 20210419
  Serious: No
  Sender: FDA-Public Use
  Company Number: US-ELI_LILLY_AND_COMPANY-US202101001987

PATIENT
  Sex: Female

DRUGS (1)
  1. EMGALITY [Suspect]
     Active Substance: GALCANEZUMAB-GNLM
     Indication: PRODUCT USED FOR UNKNOWN INDICATION
     Dosage: 120 U, UNKNOWN
     Route: 058

REACTIONS (7)
  - Thinking abnormal [Unknown]
  - Dehydration [Unknown]
  - Faecaloma [Recovered/Resolved]
  - Nausea [Unknown]
  - Headache [Unknown]
  - Vomiting [Recovered/Resolved]
  - Drug ineffective [Unknown]
